FAERS Safety Report 6444666-3 (Version None)
Quarter: 2009Q4

REPORT INFORMATION
  Report Type: 
  Country: None (occurrence: None)
  Receive Date: 20091110
  Receipt Date: 20090813
  Transmission Date: 20100525
  Serious: No
  Sender: FDA-Public Use
  Company Number: 1000008188

PATIENT
  Age: 65 Year
  Sex: Female

DRUGS (7)
  1. SAVELLA [Suspect]
     Indication: FIBROMYALGIA
     Dosage: 12.5 MG (12.5 MG, 1 IN 1 D), ORAL : 25 MG (12.5 MG, 2 IN 1 CYCLICAL), ORAL
     Route: 048
     Dates: start: 20090807, end: 20090807
  2. SAVELLA [Suspect]
     Indication: FIBROMYALGIA
     Dosage: 12.5 MG (12.5 MG, 1 IN 1 D), ORAL : 25 MG (12.5 MG, 2 IN 1 CYCLICAL), ORAL
     Route: 048
     Dates: start: 20090808, end: 20090809
  3. SAVELLA [Suspect]
     Indication: HYPOTHYROIDISM
     Dosage: 50 MG (25 MG, 2 IN 1 D), ORAL
     Route: 048
     Dates: start: 20090810, end: 20090812
  4. CYMBALTA [Concomitant]
  5. TEKTURNA [Concomitant]
  6. JANUVIA [Concomitant]
  7. OXYCODONE/IBUPROFEN [Concomitant]

REACTIONS (4)
  - CONSTIPATION [None]
  - FEELING DRUNK [None]
  - HEADACHE [None]
  - NAUSEA [None]
